FAERS Safety Report 7153281-8 (Version None)
Quarter: 2010Q4

REPORT INFORMATION
  Report Type: 
  Country: None (occurrence: None)
  Receive Date: 20101213
  Receipt Date: 20101206
  Transmission Date: 20110411
  Serious: Yes (Death, Hospitalization)
  Sender: FDA-Public Use
  Company Number: CO-ROCHE-724990

PATIENT
  Sex: Male

DRUGS (2)
  1. CELLCEPT [Suspect]
     Indication: LIVER TRANSPLANT
     Dosage: FREQUENCY: QD
     Route: 048
     Dates: start: 20080703, end: 20101102
  2. PREDNISOLONE [Concomitant]
     Dosage: FREQUENCY: QD
     Route: 048

REACTIONS (2)
  - DISEASE PROGRESSION [None]
  - TRANSPLANT REJECTION [None]
